FAERS Safety Report 9852731 (Version 1)
Quarter: 2014Q1

REPORT INFORMATION
  Report Type: Spontaneous
  Country: US (occurrence: US)
  Receive Date: 20140129
  Receipt Date: 20140129
  Transmission Date: 20141002
  Serious: Yes (Other)
  Sender: FDA-Public Use
  Company Number: US-AMGEN-USASP2014004867

PATIENT
  Age: 67 Year
  Sex: Male

DRUGS (5)
  1. NPLATE [Suspect]
     Indication: THROMBOCYTOPENIA
     Dosage: 5 MUG/KG, UNK
     Route: 065
     Dates: start: 20131107
  2. QUINAPRIL [Concomitant]
     Dosage: 60 MG, UNK
  3. ATENOLOL [Concomitant]
     Dosage: 75 MG, UNK
  4. HYDROCHLOROTHIAZIDE [Concomitant]
     Dosage: 25 MG, UNK
  5. PROTONIX [Concomitant]
     Dosage: 40 MG, UNK

REACTIONS (1)
  - Platelet count decreased [Unknown]
